FAERS Safety Report 7365992-X (Version None)
Quarter: 2011Q1

REPORT INFORMATION
  Report Type: 
  Country: None (occurrence: None)
  Receive Date: 20110322
  Receipt Date: 20110308
  Transmission Date: 20110831
  Serious: Yes (Hospitalization)
  Sender: FDA-Public Use
  Company Number: SE-MYLANLABS-2011S1004646

PATIENT
  Age: 52 Year
  Sex: Female

DRUGS (1)
  1. TAMOXIFEN [Suspect]
     Indication: BREAST CANCER
     Route: 048
     Dates: start: 20090305

REACTIONS (3)
  - UTERINE HAEMORRHAGE [None]
  - CHOLECYSTITIS [None]
  - CATARACT [None]
